FAERS Safety Report 15474625 (Version 1)
Quarter: 2018Q4

REPORT INFORMATION
  Report Type: Spontaneous
  Country: US (occurrence: US)
  Receive Date: 20181008
  Receipt Date: 20181008
  Transmission Date: 20190205
  Serious: No
  Sender: FDA-Public Use
  Company Number: US-MYLANLABS-2018M1073422

PATIENT
  Age: 28 Year
  Sex: Female

DRUGS (2)
  1. ECONTRA EZ [Suspect]
     Active Substance: LEVONORGESTREL
     Indication: CONTRACEPTION
     Dosage: UNK
     Route: 048
     Dates: start: 2017
  2. ECONTRA EZ [Suspect]
     Active Substance: LEVONORGESTREL
     Dosage: 1 DF, UNK
     Route: 048
     Dates: start: 20181001, end: 20181001

REACTIONS (1)
  - Vaginal discharge [Not Recovered/Not Resolved]

NARRATIVE: CASE EVENT DATE: 20181001
